FAERS Safety Report 15595846 (Version 1)
Quarter: 2018Q4

REPORT INFORMATION
  Report Type: Spontaneous
  Country: JP (occurrence: JP)
  Receive Date: 20181107
  Receipt Date: 20181107
  Transmission Date: 20190205
  Serious: Yes (Other)
  Sender: FDA-Public Use
  Company Number: JP-ASTRAZENECA-2018SF43126

PATIENT
  Sex: Female
  Weight: 32 kg

DRUGS (4)
  1. IRESSA [Suspect]
     Active Substance: GEFITINIB
     Indication: LUNG NEOPLASM MALIGNANT
     Dosage: 250 MG EVERY OTHER DAY
     Route: 048
  2. IRESSA [Suspect]
     Active Substance: GEFITINIB
     Indication: LUNG NEOPLASM MALIGNANT
     Route: 048
     Dates: start: 201801
  3. TAKEPRON [Concomitant]
     Active Substance: LANSOPRAZOLE
  4. NAUZELIN [Concomitant]
     Active Substance: DOMPERIDONE

REACTIONS (7)
  - Drug effect decreased [Unknown]
  - Metastases to central nervous system [Unknown]
  - Nausea [Unknown]
  - Decreased appetite [Unknown]
  - Diarrhoea [Unknown]
  - Acne [Unknown]
  - Off label use [Unknown]

NARRATIVE: CASE EVENT DATE: 2018
